FAERS Safety Report 24728793 (Version 1)
Quarter: 2024Q4

REPORT INFORMATION
  Report Type: Spontaneous
  Country: CN (occurrence: CN)
  Receive Date: 20241212
  Receipt Date: 20241212
  Transmission Date: 20250115
  Serious: Yes (Other)
  Sender: Jiangsu Hengrui Pharmaceuticals
  Company Number: CN-JIANGSU HENGRUI PHARMACEUTICALS CO., LTD.-H2024241537

PATIENT
  Age: 60 Year
  Weight: 47 kg

DRUGS (2)
  1. PACLITAXEL [Suspect]
     Active Substance: PACLITAXEL
     Indication: Breast cancer metastatic
     Dosage: 200MG D1 100MG D8
  2. CAPECITABINE [Suspect]
     Active Substance: CAPECITABINE
     Indication: Breast cancer metastatic
     Dosage: 1.5 G, BID

REACTIONS (1)
  - Mouth ulceration [Recovering/Resolving]
